FAERS Safety Report 5018255-1 (Version None)
Quarter: 2006Q2

REPORT INFORMATION
  Report Type: 
  Country: None (occurrence: None)
  Receive Date: 20060530
  Receipt Date: 20060522
  Transmission Date: 20061013
  Serious: Yes (Death, Life-Threatening)
  Sender: FDA-Public Use
  Company Number: 2006-05-0922

PATIENT
  Age: 60 Year
  Sex: Female
  Weight: 63 kg

DRUGS (6)
  1. TEMODAL [Suspect]
     Indication: GLIOBLASTOMA MULTIFORME
     Dosage: 120 MG 4-5DY/W ORAL
     Route: 048
     Dates: start: 20060314, end: 20060424
  2. CELESTONE TAB [Concomitant]
  3. EPILIM TABLETS [Concomitant]
  4. RADIATION THERAPY [Concomitant]
  5. SIMVASTATIN [Concomitant]
  6. TRIAMTERENE AND HYDROCHLOROTHIAZIDE [Concomitant]

REACTIONS (2)
  - MALIGNANT NEOPLASM PROGRESSION [None]
  - PANCYTOPENIA [None]
